FAERS Safety Report 9626643 (Version 2)
Quarter: 2013Q4

REPORT INFORMATION
  Report Type: Spontaneous
  Country: US (occurrence: US)
  Receive Date: 20131016
  Receipt Date: 20131025
  Transmission Date: 20140711
  Serious: No
  Sender: FDA-Public Use
  Company Number: US-PFIZER INC-2013296372

PATIENT
  Age: 62 Year
  Sex: Female
  Weight: 63.04 kg

DRUGS (8)
  1. CHANTIX [Suspect]
     Indication: SMOKING CESSATION THERAPY
     Dosage: 1 MG, 2X/DAY
     Dates: start: 20131014
  2. RISPERDAL [Concomitant]
     Dosage: UNK
  3. ADVAIR [Concomitant]
     Dosage: UNK
  4. HYDROCODONE [Concomitant]
     Indication: LIMB DISCOMFORT
     Dosage: UNK
  5. HYDROCODONE [Concomitant]
     Indication: BACK DISORDER
  6. TRAMADOL [Concomitant]
     Dosage: UNK
  7. SOMA [Concomitant]
     Indication: LIMB DISCOMFORT
     Dosage: UNK
  8. SOMA [Concomitant]
     Indication: BACK DISORDER

REACTIONS (4)
  - Agitation [Unknown]
  - Nervousness [Unknown]
  - Irritability [Unknown]
  - Impatience [Not Recovered/Not Resolved]
